FAERS Safety Report 16226377 (Version 4)
Quarter: 2019Q2

REPORT INFORMATION
  Report Type: Spontaneous
  Country: CA (occurrence: CA)
  Receive Date: 20190423
  Receipt Date: 20190613
  Transmission Date: 20190711
  Serious: Yes (Other)
  Sender: FDA-Public Use
  Company Number: CA-JNJFOC-20190423479

PATIENT
  Age: 72 Year
  Sex: Male
  Weight: 113.4 kg

DRUGS (3)
  1. SUPER STRENGTH MOTRIN IB LIQUID GELS CAPSULES [Suspect]
     Active Substance: IBUPROFEN
     Indication: MUSCULOSKELETAL PAIN
     Dosage: FREQUENCY: ONLY ONE TIME YESTERDAY (A DAY PRIOR TO THIS REPORT)
     Route: 048
     Dates: start: 20190411, end: 20190411
  2. SUPER STRENGTH MOTRIN IB LIQUID GELS CAPSULES [Suspect]
     Active Substance: IBUPROFEN
     Route: 048
  3. COVERSYL [Concomitant]
     Active Substance: PERINDOPRIL
     Indication: HYPERTENSION
     Dosage: FOR 5 YEARS
     Route: 065
     Dates: end: 20190411

REACTIONS (9)
  - Fall [Recovered/Resolved]
  - Wheezing [Not Recovered/Not Resolved]
  - Adverse event [Recovered/Resolved]
  - Depressed level of consciousness [Recovered/Resolved]
  - Throat irritation [Recovering/Resolving]
  - Foreign body in respiratory tract [Recovered/Resolved]
  - Oropharyngeal pain [Recovered/Resolved]
  - Sinus disorder [Not Recovered/Not Resolved]
  - Malaise [Recovered/Resolved]

NARRATIVE: CASE EVENT DATE: 20190411
